FAERS Safety Report 11916441 (Version 3)
Quarter: 2016Q1

REPORT INFORMATION
  Report Type: Spontaneous
  Country: CA (occurrence: CA)
  Receive Date: 20160114
  Receipt Date: 20160323
  Transmission Date: 20160526
  Serious: Yes (Death, Hospitalization, Other)
  Sender: FDA-Public Use
  Company Number: CA-PFIZER INC-2016014929

PATIENT
  Age: 68 Year
  Sex: Female

DRUGS (2)
  1. XELJANZ [Suspect]
     Active Substance: TOFACITINIB CITRATE
     Indication: RHEUMATOID ARTHRITIS
     Dosage: 5 MG, 2X/DAY
     Route: 048
     Dates: start: 20150708, end: 201512
  2. XELJANZ [Suspect]
     Active Substance: TOFACITINIB CITRATE
     Dosage: 5 MG, 2X/DAY
     Route: 048
     Dates: end: 20160117

REACTIONS (6)
  - Renal failure [Fatal]
  - Fall [Unknown]
  - Clostridium difficile infection [Not Recovered/Not Resolved]
  - Spinal fracture [Unknown]
  - Cardiac arrest [Fatal]
  - Acute kidney injury [Unknown]

NARRATIVE: CASE EVENT DATE: 201512
